FAERS Safety Report 7694346-1 (Version None)
Quarter: 2011Q3

REPORT INFORMATION
  Report Type: 
  Country: None (occurrence: None)
  Receive Date: 20110819
  Receipt Date: 20110809
  Transmission Date: 20111222
  Serious: Yes (Hospitalization, Other)
  Sender: FDA-Public Use
  Company Number: US-PFIZER INC-2011138302

PATIENT
  Sex: Female

DRUGS (5)
  1. TRILEPTAL [Concomitant]
     Dosage: 300 MG, 1X/DAY
  2. VYVANSE [Concomitant]
     Dosage: 60 MG, 1X/DAY
  3. PRISTIQ [Suspect]
     Indication: BIPOLAR I DISORDER
     Dosage: 100 MG, 1X/DAY
     Route: 048
     Dates: start: 20110201, end: 20110701
  4. ABILIFY [Concomitant]
     Dosage: 30 MG, 1X/DAY
  5. SEROQUEL [Concomitant]
     Dosage: AS NEEDED

REACTIONS (3)
  - THROMBOSIS [None]
  - DYSPNOEA [None]
  - LYMPHOEDEMA [None]
